FAERS Safety Report 12997145 (Version 2)
Quarter: 2018Q1

REPORT INFORMATION
  Report Type: Report from Study
  Country: MX (occurrence: MX)
  Receive Date: 20161205
  Receipt Date: 20180220
  Transmission Date: 20180508
  Serious: Yes (Disabling)
  Sender: FDA-Public Use
  Company Number: MX-ROCHE-1861487

PATIENT
  Age: 79 Year
  Sex: Female
  Weight: 56.5 kg

DRUGS (3)
  1. PEGASYS [Suspect]
     Active Substance: PEGINTERFERON ALFA-2A
     Indication: HEPATITIS C
     Dosage: START DATE /SEP/2015
     Route: 058
     Dates: end: 201603
  2. COPEGUS [Suspect]
     Active Substance: RIBAVIRIN
     Indication: HEPATITIS C
     Dosage: START DATE /SEP/2015
     Route: 048
     Dates: end: 201603
  3. PEGASYS [Suspect]
     Active Substance: PEGINTERFERON ALFA-2A
     Dosage: //2016
     Route: 058
     Dates: end: 201606

REACTIONS (26)
  - Weight decreased [Recovered/Resolved]
  - Diarrhoea [Recovered/Resolved]
  - Peripheral swelling [Recovering/Resolving]
  - Gastritis [Recovered/Resolved]
  - Nausea [Recovered/Resolved]
  - Colitis [Recovered/Resolved]
  - Decreased appetite [Recovered/Resolved]
  - Alopecia [Recovered/Resolved]
  - Pyrexia [Recovered/Resolved]
  - Catarrh [Recovered/Resolved]
  - Pain [Recovered/Resolved]
  - Back pain [Recovering/Resolving]
  - Somnolence [Recovered/Resolved]
  - Joint swelling [Recovering/Resolving]
  - Arthritis [Recovered/Resolved]
  - Productive cough [Recovered/Resolved]
  - Headache [Recovering/Resolving]
  - Pruritus [Recovered/Resolved]
  - Arthralgia [Recovering/Resolving]
  - Dry skin [Recovered/Resolved]
  - Rash [Recovered/Resolved]
  - Injection site reaction [Recovered/Resolved]
  - Varicose vein [Recovering/Resolving]
  - Influenza [Recovered/Resolved]
  - Vomiting [Recovered/Resolved]
  - Cough [Recovered/Resolved]

NARRATIVE: CASE EVENT DATE: 2015
